FAERS Safety Report 4580519-3 (Version None)
Quarter: 2005Q1

REPORT INFORMATION
  Report Type: 
  Country: None (occurrence: None)
  Receive Date: 20050127
  Receipt Date: 20040921
  Transmission Date: 20050727
  Serious: No
  Sender: FDA-Public Use
  Company Number: USA040773954

PATIENT
  Age: 6 Year
  Sex: Male
  Weight: 30 kg

DRUGS (3)
  1. STRATTERA [Suspect]
     Indication: ATTENTION DEFICIT/HYPERACTIVITY DISORDER
     Dosage: 40 MG DAY
     Dates: start: 20030801
  2. BENADRYL [Concomitant]
  3. ZYRTEC [Concomitant]

REACTIONS (9)
  - ABDOMINAL PAIN UPPER [None]
  - CONTUSION [None]
  - EMOTIONAL DISTRESS [None]
  - FEELING ABNORMAL [None]
  - HEADACHE [None]
  - INSOMNIA [None]
  - PSYCHOMOTOR HYPERACTIVITY [None]
  - SEDATION [None]
  - WEIGHT DECREASED [None]
